FAERS Safety Report 14417834 (Version 1)
Quarter: 2018Q1

REPORT INFORMATION
  Report Type: Spontaneous
  Country: US (occurrence: US)
  Receive Date: 20180119
  Receipt Date: 20180119
  Transmission Date: 20180509
  Serious: Yes (Other)
  Sender: FDA-Public Use
  Company Number: None

PATIENT
  Sex: Female

DRUGS (7)
  1. METOPROL TAR [Concomitant]
  2. VITAMIN D [Concomitant]
     Active Substance: CHOLECALCIFEROL
  3. FOLTABS [Concomitant]
  4. IMATINIB [Suspect]
     Active Substance: IMATINIB
     Indication: GASTRIC CANCER
     Route: 048
     Dates: start: 20160216
  5. PROTONIX [Concomitant]
     Active Substance: PANTOPRAZOLE SODIUM
  6. MAXALT [Concomitant]
     Active Substance: RIZATRIPTAN BENZOATE
  7. POTASSIUM [Concomitant]
     Active Substance: POTASSIUM

REACTIONS (3)
  - Aneurysm [None]
  - Therapy cessation [None]
  - Cerebrovascular accident [None]
